FAERS Safety Report 7657414-6 (Version None)
Quarter: 2011Q3

REPORT INFORMATION
  Report Type: 
  Country: None (occurrence: None)
  Receive Date: 20110804
  Receipt Date: 20110624
  Transmission Date: 20111222
  Serious: No
  Sender: FDA-Public Use
  Company Number: US-ASTRAZENECA-2011SE38222

PATIENT
  Age: 55 Year
  Sex: Female

DRUGS (6)
  1. AMBIEN [Concomitant]
  2. CALCIUM ACETATE [Concomitant]
     Dosage: 1200-1000 MG BID
     Route: 048
  3. MULTI-VITAMINS [Concomitant]
     Dosage: DAILY
     Route: 048
  4. ACETAMINOPHEN [Concomitant]
     Route: 048
  5. VANDETANIB [Suspect]
     Indication: THYROID CANCER
     Route: 048
     Dates: start: 20110610
  6. SYNTHROID [Concomitant]
     Route: 048

REACTIONS (8)
  - OROPHARYNGEAL BLISTERING [None]
  - DRY MOUTH [None]
  - EPISTAXIS [None]
  - HYPERHIDROSIS [None]
  - FATIGUE [None]
  - INSOMNIA [None]
  - ORAL PAIN [None]
  - VISION BLURRED [None]
